FAERS Safety Report 9101117 (Version 1)
Quarter: 2013Q1

REPORT INFORMATION
  Report Type: Spontaneous
  Country: US (occurrence: US)
  Receive Date: 20130218
  Receipt Date: 20130218
  Transmission Date: 20140127
  Serious: Yes (Other)
  Sender: FDA-Public Use
  Company Number: US-RB-049476-13

PATIENT
  Age: 73 Year
  Sex: Male

DRUGS (1)
  1. DELSYM ADULT GRAPE [Suspect]
     Indication: PRODUCT USED FOR UNKNOWN INDICATION
     Route: 048
     Dates: start: 20130127

REACTIONS (1)
  - Blood glucose increased [Not Recovered/Not Resolved]
